FAERS Safety Report 4784449-3 (Version None)
Quarter: 2005Q3

REPORT INFORMATION
  Report Type: 
  Country: None (occurrence: None)
  Receive Date: 20050929
  Receipt Date: 20050929
  Transmission Date: 20060218
  Serious: Yes (Life-Threatening, Hospitalization)
  Sender: FDA-Public Use
  Company Number: None

PATIENT
  Age: 62 Year
  Sex: Female
  Weight: 85.6 kg

DRUGS (13)
  1. CIPROFLOXACIN [Suspect]
     Indication: POSTOPERATIVE INFECTION
     Dosage: 500 MG TWICE DAILY PO
     Route: 048
     Dates: start: 20050907, end: 20050922
  2. POTASSIUM [Concomitant]
  3. LOSARTAN POTASSIUM [Concomitant]
  4. LINEZOLID [Concomitant]
  5. CARVEDILOL [Concomitant]
  6. LOVASTATIN [Concomitant]
  7. CLINDAMYCIN [Concomitant]
  8. MEDROXYPROGESTERONE [Concomitant]
  9. ESTRADIO [Concomitant]
  10. CEPHALEXIN [Concomitant]
  11. OMEPRAZOLE [Concomitant]
  12. FLUOXETINE [Concomitant]
  13. FUROSEMIDE [Concomitant]

REACTIONS (5)
  - CARDIO-RESPIRATORY ARREST [None]
  - CONVULSION [None]
  - TACHYCARDIA [None]
  - VENTRICULAR FIBRILLATION [None]
  - VENTRICULAR TACHYCARDIA [None]
